FAERS Safety Report 4582290-8 (Version None)
Quarter: 2005Q1

REPORT INFORMATION
  Report Type: 
  Country: None (occurrence: None)
  Receive Date: 20050214
  Receipt Date: 20050202
  Transmission Date: 20050727
  Serious: Yes (Hospitalization)
  Sender: FDA-Public Use
  Company Number: SE-AMGEN-UK111066

PATIENT
  Sex: Male

DRUGS (2)
  1. NEULASTA [Suspect]
     Indication: MYELODYSPLASTIC SYNDROME
     Route: 065
     Dates: start: 20050120
  2. NEORECORMON [Concomitant]
     Route: 065

REACTIONS (7)
  - ARTHRALGIA [None]
  - CHONDROCALCINOSIS PYROPHOSPHATE [None]
  - CRYSTAL ARTHROPATHY [None]
  - FEELING ABNORMAL [None]
  - JOINT RANGE OF MOTION DECREASED [None]
  - MYALGIA [None]
  - PYREXIA [None]
